FAERS Safety Report 17826653 (Version 1)
Quarter: 2020Q2

REPORT INFORMATION
  Report Type: Spontaneous
  Country: DE (occurrence: DE)
  Receive Date: 20200526
  Receipt Date: 20200526
  Transmission Date: 20200714
  Serious: Yes (Hospitalization, Other)
  Sender: FDA-Public Use
  Company Number: DE-009507513-2005DEU007739

PATIENT
  Age: 32 Year
  Sex: Female

DRUGS (9)
  1. ESTRIFAM [Suspect]
     Active Substance: ESTRADIOL
  2. PROGESTERONE. [Suspect]
     Active Substance: PROGESTERONE
  3. FOLIC ACID. [Suspect]
     Active Substance: FOLIC ACID
  4. FRAGMIN P FORTE [Suspect]
     Active Substance: DALTEPARIN SODIUM
  5. MENOGON [Suspect]
     Active Substance: MENOTROPINS
  6. GONAL-F [Suspect]
     Active Substance: FOLLITROPIN
  7. ORGALUTRAN [Suspect]
     Active Substance: GANIRELIX ACETATE
  8. GONADOTROPIN, CHORIONIC [Suspect]
     Active Substance: CHORIOGONADOTROPIN ALFA
  9. TRIPTORELIN [Suspect]
     Active Substance: TRIPTORELIN

REACTIONS (3)
  - Uterine hyperstimulation [Recovered/Resolved]
  - Pleural effusion [Recovered/Resolved]
  - Ascites [Recovered/Resolved]

NARRATIVE: CASE EVENT DATE: 20150601
